FAERS Safety Report 6797657-7 (Version None)
Quarter: 2010Q2

REPORT INFORMATION
  Report Type: 
  Country: None (occurrence: None)
  Receive Date: 20100623
  Receipt Date: 20100609
  Transmission Date: 20101027
  Serious: Yes (Death, Other)
  Sender: FDA-Public Use
  Company Number: 2010AL003534

PATIENT
  Age: 52 Year
  Sex: Female

DRUGS (12)
  1. EPIRUBICIN HYDROCHLORIDE [Suspect]
  2. DOCETAXEL [Concomitant]
  3. CYCLOPHOSPHAMIDE [Concomitant]
  4. CLOZARIL [Concomitant]
  5. CHEMOTHERAPY [Concomitant]
  6. ESCITALOPRAM [Concomitant]
  7. EZETIMIBE [Concomitant]
  8. AMITRIPTYLINE HYDROCHLORIDE [Concomitant]
  9. CLONAZEPAM [Concomitant]
  10. MESALAZINE [Concomitant]
  11. ASACOL [Concomitant]
  12. ESCITALOPRAM [Concomitant]

REACTIONS (8)
  - BREAST CANCER [None]
  - CIRCULATORY COLLAPSE [None]
  - DIABETES MELLITUS [None]
  - HYPOGLYCAEMIA [None]
  - LYMPHOCYTE COUNT DECREASED [None]
  - PNEUMONIA [None]
  - TREATMENT NONCOMPLIANCE [None]
  - WHITE BLOOD CELL COUNT DECREASED [None]
